FAERS Safety Report 13646145 (Version 1)
Quarter: 2017Q2

REPORT INFORMATION
  Report Type: Spontaneous
  Country: US (occurrence: US)
  Receive Date: 20170612
  Receipt Date: 20170612
  Transmission Date: 20170830
  Serious: Yes (Hospitalization)
  Sender: FDA-Public Use
  Company Number: None

PATIENT
  Sex: Male
  Weight: 96.8 kg

DRUGS (3)
  1. LORAZEPAM (ATIVAN) [Concomitant]
  2. SOFOSBUVIR/VALPATAVIR 400-100MG GILEAD [Suspect]
     Active Substance: SOFOSBUVIR\VELPATASVIR
     Route: 048
     Dates: start: 20160816, end: 20170131
  3. MORPHINE (MSIR) [Concomitant]

REACTIONS (2)
  - Hepatorenal syndrome [None]
  - Hospice care [None]

NARRATIVE: CASE EVENT DATE: 20170123
